FAERS Safety Report 11133629 (Version 1)
Quarter: 2015Q2

REPORT INFORMATION
  Report Type: Spontaneous
  Country: US (occurrence: US)
  Receive Date: 20150523
  Receipt Date: 20150523
  Transmission Date: 20150821
  Serious: Yes (Other)
  Sender: FDA-Public Use
  Company Number: US-CIPLA LTD.-2015US04080

PATIENT

DRUGS (4)
  1. IRINOTECAN [Suspect]
     Active Substance: IRINOTECAN
     Indication: NEOPLASM RECURRENCE
     Dosage: 30 MG/M2, UNK,  ON DAYS 1-5 APPROXIMATELY 60 MINUTES AFTER TEMOZOLOMIDE INTAKE
     Route: 042
  2. TEMOZOLOMIDE. [Suspect]
     Active Substance: TEMOZOLOMIDE
     Indication: NEOPLASM RECURRENCE
     Dosage: 100 MG/M2, UNK, ON DAYS 1-5
     Route: 048
  3. BEVACIZUMAB [Suspect]
     Active Substance: BEVACIZUMAB
     Indication: NEOPLASM RECURRENCE
     Dosage: 15 MG/KG, UNK, ON DAY 1 ADMINISTERED
     Route: 042
  4. VINCRISTINE [Suspect]
     Active Substance: VINCRISTINE
     Indication: NEOPLASM RECURRENCE
     Dosage: 1.5 MG/M2, UNK,  ON DAYS 1 AND 8;
     Route: 042

REACTIONS (2)
  - Hypertension [Unknown]
  - Pain [Unknown]
